FAERS Safety Report 8450994-2 (Version None)
Quarter: 2012Q2

REPORT INFORMATION
  Report Type: 
  Country: None (occurrence: None)
  Receive Date: 20120620
  Receipt Date: 20120611
  Transmission Date: 20120825
  Serious: Yes (Other)
  Sender: FDA-Public Use
  Company Number: DE-AMGEN-DEUSP2012005941

PATIENT
  Age: 43 Year
  Sex: Male

DRUGS (4)
  1. NAPROXEN [Concomitant]
     Dosage: 500 MG, 1X/DAY
  2. CORTISONE ACETATE [Concomitant]
     Dosage: 2 MG, 1X/DAY
  3. OMEPRAZOLE [Concomitant]
     Indication: PROPHYLAXIS
     Dosage: UNK
  4. ENBREL [Suspect]
     Indication: RHEUMATOID ARTHRITIS
     Dosage: 50 MG, WEEKLY
     Route: 058
     Dates: start: 20090501

REACTIONS (3)
  - HYPERHIDROSIS [None]
  - PRURITUS [None]
  - ABSCESS [None]
